FAERS Safety Report 9494176 (Version 1)
Quarter: 2013Q3

REPORT INFORMATION
  Report Type: Report from Study
  Country: US (occurrence: US)
  Receive Date: 20130903
  Receipt Date: 20130903
  Transmission Date: 20140515
  Serious: Yes (Other)
  Sender: FDA-Public Use
  Company Number: PHEH2013US018452

PATIENT
  Age: 40 Year
  Sex: Female
  Weight: 102.4 kg

DRUGS (1)
  1. GILENYA [Suspect]
     Indication: MULTIPLE SCLEROSIS
     Dosage: 0.5 MG, QD
     Route: 048
     Dates: start: 20130710

REACTIONS (5)
  - Mania [Unknown]
  - Insomnia [Unknown]
  - Dehydration [Unknown]
  - Delusion [Unknown]
  - Headache [Not Recovered/Not Resolved]
